FAERS Safety Report 5762842-X (Version None)
Quarter: 2008Q2

REPORT INFORMATION
  Report Type: 
  Country: None (occurrence: None)
  Receive Date: 20080609
  Receipt Date: 20080606
  Transmission Date: 20081010
  Serious: Yes (Other)
  Sender: FDA-Public Use
  Company Number: US-BRISTOL-MYERS SQUIBB COMPANY-14209035

PATIENT
  Age: 42 Year
  Sex: Female

DRUGS (5)
  1. REYATAZ [Suspect]
     Indication: ANTIRETROVIRAL THERAPY
     Route: 048
  2. VIDEX [Suspect]
     Indication: ANTIRETROVIRAL THERAPY
     Dosage: LAST DOSE ADMINISTERED 12MAY08
     Route: 048
  3. SUSTIVA [Suspect]
     Indication: ANTIRETROVIRAL THERAPY
     Dosage: LAST DOSE ADMINISTERED 12MAY08
     Route: 048
  4. NORVIR [Suspect]
     Indication: ANTIRETROVIRAL THERAPY
     Route: 048
  5. TRUVADA [Suspect]
     Indication: ANTIRETROVIRAL THERAPY
     Dosage: 1 DOSAGE FORM = 1 TABLET
     Route: 048
     Dates: start: 20080512

REACTIONS (2)
  - ABORTION SPONTANEOUS [None]
  - PREGNANCY [None]
